FAERS Safety Report 10949009 (Version 4)
Quarter: 2015Q2

REPORT INFORMATION
  Report Type: Spontaneous
  Country: US (occurrence: US)
  Receive Date: 20150324
  Receipt Date: 20150505
  Transmission Date: 20150821
  Serious: Yes (Death, Hospitalization)
  Sender: FDA-Public Use
  Company Number: US-UNITED THERAPEUTICS-UNT-2015-001712

PATIENT
  Age: 67 Year
  Sex: Female
  Weight: 70.75 kg

DRUGS (3)
  1. TYVASO [Suspect]
     Active Substance: TREPROSTINIL
     Dosage: 18-72 MICROGRAMS, QID
     Dates: start: 20150127
  2. TYVASO [Suspect]
     Active Substance: TREPROSTINIL
     Indication: PULMONARY ARTERIAL HYPERTENSION
     Dosage: 18-72 MICROGRAMS, QID
     Dates: start: 20150127
  3. TYVASO [Suspect]
     Active Substance: TREPROSTINIL
     Dosage: 18-72 ?G, QID
     Dates: start: 20150127

REACTIONS (11)
  - Fall [Unknown]
  - Headache [Unknown]
  - Wrong technique in drug usage process [Recovered/Resolved]
  - Pulmonary arterial hypertension [Unknown]
  - Lung disorder [Unknown]
  - Syncope [Unknown]
  - Oedema peripheral [Unknown]
  - Cardiac failure [Unknown]
  - Dyspnoea [Unknown]
  - Death [Fatal]
  - Renal failure [Unknown]

NARRATIVE: CASE EVENT DATE: 201502
